FAERS Safety Report 9580732 (Version 1)
Quarter: 2013Q4

REPORT INFORMATION
  Report Type: Spontaneous
  Country: IT (occurrence: IT)
  Receive Date: 20131002
  Receipt Date: 20131002
  Transmission Date: 20140711
  Serious: Yes (Hospitalization, Other)
  Sender: FDA-Public Use
  Company Number: IT-ELI_LILLY_AND_COMPANY-IT201309006578

PATIENT
  Age: 41 Year
  Sex: Female

DRUGS (2)
  1. ZYPREXA [Suspect]
     Indication: ABNORMAL BEHAVIOUR
     Dosage: 5 MG, QD
     Route: 048
  2. ZYPREXA [Suspect]
     Indication: PSYCHOTIC DISORDER

REACTIONS (4)
  - Anuria [Recovering/Resolving]
  - Pollakiuria [Unknown]
  - Agitation [Unknown]
  - Dry mouth [Recovering/Resolving]
